FAERS Safety Report 9262066 (Version 3)
Quarter: 2013Q3

REPORT INFORMATION
  Report Type: Spontaneous
  Country: US (occurrence: US)
  Receive Date: 20130430
  Receipt Date: 20130731
  Transmission Date: 20140515
  Serious: No
  Sender: FDA-Public Use
  Company Number: US-009507513-1304USA016493

PATIENT
  Sex: Female
  Weight: 81.63 kg

DRUGS (4)
  1. REBETOL [Suspect]
     Indication: HEPATITIS C
     Dosage: 400 Q AM, 600 Q PM
     Route: 048
     Dates: start: 20130327
  2. VICTRELIS [Suspect]
     Dosage: 800 MG, Q8H
     Route: 048
     Dates: start: 20130423
  3. PEGASYS [Suspect]
     Indication: HEPATITIS C
     Dosage: 180 MICROGRAM, QW
     Route: 058
     Dates: start: 20130327
  4. INSULIN [Concomitant]
     Indication: DIABETES MELLITUS

REACTIONS (3)
  - Memory impairment [Unknown]
  - Dyspepsia [Unknown]
  - Platelet count decreased [Unknown]
